FAERS Safety Report 26023540 (Version 1)
Quarter: 2025Q4

REPORT INFORMATION
  Report Type: Spontaneous
  Country: US (occurrence: US)
  Receive Date: 20251111
  Receipt Date: 20251111
  Transmission Date: 20260118
  Serious: Yes (Hospitalization)
  Sender: AMGEN
  Company Number: US-AMGEN-USASP2025218266

PATIENT
  Age: 27 Year
  Sex: Female

DRUGS (11)
  1. PREDNISONE [Suspect]
     Active Substance: PREDNISONE
     Indication: Sjogren^s syndrome
     Dosage: 40 MILLIGRAM, QD, TAPERING REGIMEN
     Route: 065
  2. PREDNISONE [Suspect]
     Active Substance: PREDNISONE
     Dosage: 10 MILLIGRAM, QD, TAPERED DOSE
     Route: 065
  3. PREDNISONE [Suspect]
     Active Substance: PREDNISONE
     Dosage: 5 MILLIGRAM, QD TAPERED DOSE
     Route: 065
  4. PREDNISONE [Suspect]
     Active Substance: PREDNISONE
     Dosage: 60 MILLIGRAM, QD
     Route: 065
  5. PREDNISONE [Suspect]
     Active Substance: PREDNISONE
     Dosage: 5 MILLIGRAM, QD
     Route: 065
  6. RITUXIMAB [Suspect]
     Active Substance: RITUXIMAB
     Indication: Immune thrombocytopenia
     Dosage: UNK
     Route: 065
  7. PANTOPRAZOLE [Concomitant]
     Active Substance: PANTOPRAZOLE
  8. METRONIDAZOLE [Concomitant]
     Active Substance: METRONIDAZOLE
  9. BISMUTH [Concomitant]
     Active Substance: BISMUTH SUBSALICYLATE
  10. DOXYCYCLINE [Concomitant]
     Active Substance: DOXYCYCLINE
  11. ICATIBANT [Concomitant]
     Active Substance: ICATIBANT ACETATE

REACTIONS (4)
  - Immune thrombocytopenia [Recovering/Resolving]
  - Porphyria [Unknown]
  - Drug effective for unapproved indication [Unknown]
  - Off label use [Unknown]
